FAERS Safety Report 18475142 (Version 1)
Quarter: 2020Q4

REPORT INFORMATION
  Report Type: Other
  Country: US (occurrence: CA)
  Receive Date: 20201106
  Receipt Date: 20201106
  Transmission Date: 20210114
  Serious: Yes (Hospitalization, Other)
  Sender: FDA-Public Use
  Company Number: CA-BRECKENRIDGE PHARMACEUTICAL, INC.-2093674

PATIENT
  Age: 22 Year
  Sex: Male

DRUGS (1)
  1. TERBINAFINE. [Suspect]
     Active Substance: TERBINAFINE
     Indication: TINEA INFECTION
     Route: 048

REACTIONS (2)
  - Rhabdomyolysis [None]
  - Acute kidney injury [None]
